FAERS Safety Report 8821723 (Version 1)
Quarter: 2012Q4

REPORT INFORMATION
  Report Type: 
  Country: US (occurrence: US)
  Receive Date: 20121002
  Receipt Date: 20121002
  Transmission Date: 20130627
  Serious: No
  Sender: FDA-Public Use
  Company Number: US-VERTEX PHARMACEUTICAL INC.-2012-020530

PATIENT
  Sex: Male
  Weight: 83.9 kg

DRUGS (7)
  1. VX-950 [Suspect]
     Indication: HEPATITIS C
     Dosage: 750 mg, tid
     Route: 048
     Dates: start: 2012
  2. PEGASYS [Concomitant]
     Indication: HEPATITIS C
     Dosage: 180 ?g, UNK
     Route: 058
     Dates: start: 2012
  3. RIBASPHERE [Concomitant]
     Indication: HEPATITIS C
     Dosage: 600 mg, bid
     Dates: start: 2012
  4. TRAMADOL HCL [Concomitant]
  5. LORTAB                             /00607101/ [Concomitant]
  6. ALPRAZOLAM [Concomitant]
  7. WARFARIN SODIUM [Concomitant]

REACTIONS (1)
  - Blood thyroid stimulating hormone abnormal [Unknown]
